FAERS Safety Report 4295832-7 (Version None)
Quarter: 2004Q1

REPORT INFORMATION
  Report Type: 
  Country: None (occurrence: None)
  Receive Date: 20040216
  Receipt Date: 20031117
  Transmission Date: 20041129
  Serious: Yes (Other)
  Sender: FDA-Public Use
  Company Number: US-GLAXOSMITHKLINE-A0440015A

PATIENT
  Sex: Male

DRUGS (1)
  1. LAMICTAL [Suspect]
     Dosage: 300MG PER DAY
     Route: 048

REACTIONS (4)
  - EPILEPSY [None]
  - GRAND MAL CONVULSION [None]
  - NERVOUSNESS [None]
  - VISION BLURRED [None]
